FAERS Safety Report 6297747-1 (Version None)
Quarter: 2009Q3

REPORT INFORMATION
  Report Type: 
  Country: None (occurrence: None)
  Receive Date: 20090805
  Receipt Date: 20090730
  Transmission Date: 20100115
  Serious: Yes (Hospitalization)
  Sender: FDA-Public Use
  Company Number: US-AMGEN-US357021

PATIENT
  Sex: Male
  Weight: 95.3 kg

DRUGS (11)
  1. NPLATE [Suspect]
     Indication: IDIOPATHIC THROMBOCYTOPENIC PURPURA
     Route: 058
     Dates: start: 20090701
  2. BUMEX [Concomitant]
  3. SYNTHROID [Concomitant]
  4. SINEMET [Concomitant]
  5. URECHOLINE [Concomitant]
  6. PREDNISONE TAB [Concomitant]
  7. UNSPECIFIED VITAMINS [Concomitant]
  8. LEXAPRO [Concomitant]
  9. LIPITOR [Concomitant]
  10. FLOMAX [Concomitant]
  11. NORVASC [Concomitant]

REACTIONS (2)
  - CHRONIC OBSTRUCTIVE PULMONARY DISEASE [None]
  - RENAL FAILURE CHRONIC [None]
